FAERS Safety Report 8035566-6 (Version None)
Quarter: 2012Q1

REPORT INFORMATION
  Report Type: 
  Country: None (occurrence: None)
  Receive Date: 20120110
  Receipt Date: 20120110
  Transmission Date: 20120608
  Serious: No
  Sender: FDA-Public Use
  Company Number: None

PATIENT
  Age: 84 Year
  Sex: Female
  Weight: 60.782 kg

DRUGS (1)
  1. AGGRENOX [Suspect]

REACTIONS (5)
  - ABDOMINAL PAIN UPPER [None]
  - DRUG HYPERSENSITIVITY [None]
  - DYSPEPSIA [None]
  - VOMITING [None]
  - ASTHENIA [None]
